FAERS Safety Report 16883342 (Version 2)
Quarter: 2021Q4

REPORT INFORMATION
  Report Type: Other
  Country: CA (occurrence: None)
  Receive Date: 20191004
  Receipt Date: 20211210
  Transmission Date: 20220303
  Serious: Yes (Other)
  Sender: FDA-Public Use
  Company Number: CA-ROCHE-2262904

PATIENT
  Age: 73 Year
  Sex: Female
  Weight: 79 kg

DRUGS (18)
  1. RITUXAN [Suspect]
     Active Substance: RITUXIMAB
     Indication: Rheumatoid arthritis
     Dosage: ON 25/SEP/2018, SHE RECEIVED HER PREVIOUS RITUXIMAB INFUSION.
     Route: 042
     Dates: start: 20170314
  2. DOCUSATE [Concomitant]
     Active Substance: DOCUSATE
  3. CELECOXIB [Concomitant]
     Active Substance: CELECOXIB
  4. FOSAVANCE [Concomitant]
     Active Substance: ALENDRONATE SODIUM\CHOLECALCIFEROL
  5. ROSUVASTATIN [Concomitant]
     Active Substance: ROSUVASTATIN
  6. LEUCOVORIN [Concomitant]
     Active Substance: LEUCOVORIN
  7. METHOTREXATE [Concomitant]
     Active Substance: METHOTREXATE
  8. SYNTHROID [Concomitant]
     Active Substance: LEVOTHYROXINE SODIUM
  9. PREDNISONE [Concomitant]
     Active Substance: PREDNISONE
  10. HYDROXYCHLOROQUINE [Concomitant]
     Active Substance: HYDROXYCHLOROQUINE
  11. DEXILANT [Concomitant]
     Active Substance: DEXLANSOPRAZOLE
  12. FLUCONAZOLE [Concomitant]
     Active Substance: FLUCONAZOLE
  13. ZOPICLONE [Concomitant]
     Active Substance: ZOPICLONE
     Dosage: AS NEEDED
  14. PREMARIN [Concomitant]
     Active Substance: ESTROGENS, CONJUGATED
  15. BENADRYL [Concomitant]
     Active Substance: DIPHENHYDRAMINE HYDROCHLORIDE
     Indication: Premedication
     Route: 048
  16. ACETAMINOPHEN [Concomitant]
     Active Substance: ACETAMINOPHEN
     Indication: Premedication
     Route: 048
  17. SOLU-MEDROL [Concomitant]
     Active Substance: METHYLPREDNISOLONE SODIUM SUCCINATE
     Indication: Premedication
     Route: 042
  18. PREMARIN [Concomitant]
     Active Substance: ESTROGENS, CONJUGATED

REACTIONS (9)
  - Pneumonia [Recovered/Resolved]
  - Bronchitis [Not Recovered/Not Resolved]
  - Cataract [Recovered/Resolved]
  - Ill-defined disorder [Recovered/Resolved]
  - Pneumonia [Recovered/Resolved]
  - Bronchitis [Recovered/Resolved]
  - Urinary tract infection [Recovered/Resolved]
  - Drug intolerance [Unknown]
  - Rheumatoid arthritis [Unknown]

NARRATIVE: CASE EVENT DATE: 20181101
